FAERS Safety Report 9469410 (Version 1)
Quarter: 2013Q3

REPORT INFORMATION
  Report Type: Spontaneous
  Country: US (occurrence: US)
  Receive Date: 20130822
  Receipt Date: 20130822
  Transmission Date: 20140515
  Serious: Yes (Other)
  Sender: FDA-Public Use
  Company Number: US-AMGEN-USASP2013057839

PATIENT
  Age: 43 Year
  Sex: Female
  Weight: 99.77 kg

DRUGS (4)
  1. ENBREL [Suspect]
     Indication: RHEUMATOID ARTHRITIS
     Dosage: UNK
     Route: 065
     Dates: start: 2008, end: 2013
  2. ENBREL [Suspect]
     Indication: PSORIATIC ARTHROPATHY
  3. METHADONE [Concomitant]
     Indication: PAIN
     Dosage: 10 MG, 4X/DAY
  4. ZANAFLEX [Concomitant]
     Dosage: 2 PILLS, TID

REACTIONS (7)
  - Drug withdrawal syndrome [Unknown]
  - Arthralgia [Unknown]
  - Migraine [Unknown]
  - Abdominal discomfort [Unknown]
  - Pain [Unknown]
  - Nausea [Unknown]
  - Arthritis [Unknown]
